FAERS Safety Report 4389327-X (Version None)
Quarter: 2004Q3

REPORT INFORMATION
  Report Type: 
  Country: None (occurrence: None)
  Receive Date: 20040702
  Receipt Date: 20040701
  Transmission Date: 20050211
  Serious: Yes (Hospitalization)
  Sender: FDA-Public Use
  Company Number: FR-ROCHE-372571

PATIENT
  Age: 77 Year
  Sex: Female

DRUGS (9)
  1. LOXEN LP [Suspect]
     Indication: HYPERTENSION
     Route: 048
     Dates: start: 20010331, end: 20010411
  2. ESIDRIX [Suspect]
     Indication: HYPERTENSION
     Route: 048
     Dates: start: 20010327, end: 20010411
  3. PHYSIOTENS [Suspect]
     Indication: DRUG USE FOR UNKNOWN INDICATION
     Route: 065
     Dates: start: 20010331, end: 20010411
  4. HYPERIUM [Suspect]
     Indication: HYPERTENSION
     Route: 048
     Dates: start: 20010331, end: 20010410
  5. LASILIX [Suspect]
     Indication: HYPERTENSION
     Route: 048
     Dates: start: 20010327, end: 20010411
  6. FUROSEMIDE [Concomitant]
     Dosage: DRUG NAME REPORTED AS LASILIX LP.
     Route: 048
     Dates: start: 20010215
  7. NAFTAZONE [Concomitant]
     Route: 048
     Dates: start: 20010327, end: 20010411
  8. TRIATEC [Concomitant]
     Dates: start: 20010215
  9. TENORMIN [Concomitant]
     Dates: start: 20010215

REACTIONS (4)
  - DIZZINESS [None]
  - HYPOTENSION [None]
  - MALAISE [None]
  - NAUSEA [None]
